FAERS Safety Report 23996189 (Version 1)
Quarter: 2024Q2

REPORT INFORMATION
  Report Type: Spontaneous
  Country: US (occurrence: None)
  Receive Date: 20240620
  Receipt Date: 20240620
  Transmission Date: 20240715
  Serious: No
  Sender: FDA-Public Use
  Company Number: None

PATIENT
  Sex: Female

DRUGS (1)
  1. AUSTEDO XR [Suspect]
     Active Substance: DEUTETRABENAZINE
     Indication: Dyskinesia
     Dosage: 24MG ONCE  DAILY ORAL?
     Route: 048
     Dates: start: 202310

REACTIONS (4)
  - Pain in extremity [None]
  - Pain in extremity [None]
  - Eye disorder [None]
  - Visual impairment [None]
